FAERS Safety Report 6233471-9 (Version None)
Quarter: 2009Q2

REPORT INFORMATION
  Report Type: 
  Country: None (occurrence: None)
  Receive Date: 20090617
  Receipt Date: 20090610
  Transmission Date: 20091009
  Serious: Yes (Hospitalization, Other)
  Sender: FDA-Public Use
  Company Number: US-ELI_LILLY_AND_COMPANY-US200906002582

PATIENT
  Sex: Female

DRUGS (9)
  1. HUMULIN N [Suspect]
     Dosage: 38 U, EACH EVENING
  2. PLAVIX [Concomitant]
  3. LOTREL [Concomitant]
  4. VYTORIN [Concomitant]
  5. LEVOTHYROXINE SODIUM [Concomitant]
  6. HYDROCHLOROTHIAZIDE [Concomitant]
  7. FLUOXETINE HCL [Concomitant]
  8. ISOSORBIDE [Concomitant]
     Indication: HYPERTENSION
  9. NOVOLOG [Concomitant]

REACTIONS (6)
  - BLINDNESS [None]
  - BLOOD GLUCOSE DECREASED [None]
  - BLOOD GLUCOSE INCREASED [None]
  - CARDIAC DISORDER [None]
  - DIABETIC COMA [None]
  - HYPERTENSION [None]
